FAERS Safety Report 12459458 (Version 1)
Quarter: 2016Q2

REPORT INFORMATION
  Report Type: Spontaneous
  Country: US (occurrence: US)
  Receive Date: 20160613
  Receipt Date: 20160613
  Transmission Date: 20160815
  Serious: No
  Sender: FDA-Public Use
  Company Number: US-GLAXOSMITHKLINE-US2016GSK083539

PATIENT
  Sex: Female
  Weight: 58.96 kg

DRUGS (2)
  1. IMITREX [Suspect]
     Active Substance: SUMATRIPTAN SUCCINATE
     Indication: MIGRAINE
     Dosage: 6 MG, UNK
     Dates: start: 201505
  2. IMITREX [Suspect]
     Active Substance: SUMATRIPTAN SUCCINATE
     Dosage: UNK
     Dates: start: 201505

REACTIONS (3)
  - Product quality issue [Unknown]
  - Drug dose omission [Not Recovered/Not Resolved]
  - Device issue [Not Recovered/Not Resolved]
